FAERS Safety Report 10494091 (Version 1)
Quarter: 2014Q4

REPORT INFORMATION
  Report Type: Spontaneous
  Country: GB (occurrence: GB)
  Receive Date: 20141003
  Receipt Date: 20141003
  Transmission Date: 20150528
  Serious: Yes (Death)
  Sender: FDA-Public Use
  Company Number: GB-BRISTOL-MYERS SQUIBB COMPANY-21452248

PATIENT
  Age: 89 Year
  Sex: Female
  Weight: 69.85 kg

DRUGS (17)
  1. SIMVASTATIN. [Concomitant]
     Active Substance: SIMVASTATIN
     Dates: start: 20140725, end: 20140918
  2. DIPROBASE [Concomitant]
     Active Substance: CHLOROCRESOL
     Dates: start: 20140624, end: 20140726
  3. DOMPERIDONE [Concomitant]
     Active Substance: DOMPERIDONE
     Dates: start: 20140630, end: 20140710
  4. ISPAGHULA [Concomitant]
     Active Substance: PLANTAGO OVATA SEED
     Dates: start: 20140521, end: 20140620
  5. SPIRONOLACTONE. [Concomitant]
     Active Substance: SPIRONOLACTONE
     Dates: start: 20140623, end: 20140918
  6. ELIQUIS [Suspect]
     Active Substance: APIXABAN
     Route: 048
     Dates: start: 20140917, end: 20140919
  7. ATARAX [Concomitant]
     Active Substance: HYDROXYZINE\HYDROXYZINE HYDROCHLORIDE
     Dates: start: 20140623, end: 20140918
  8. LISINOPRIL. [Concomitant]
     Active Substance: LISINOPRIL
     Dates: start: 20140725, end: 20140918
  9. PROCHLORPERAZINE. [Concomitant]
     Active Substance: PROCHLORPERAZINE
     Dates: start: 20140630, end: 20140701
  10. BISOPROLOL [Concomitant]
     Active Substance: BISOPROLOL
     Dates: start: 20140725, end: 20140828
  11. ALGINIC ACID [Concomitant]
     Active Substance: ALGINIC ACID
     Dates: start: 20140918, end: 20140919
  12. CO-AMOXICLAV [Concomitant]
     Active Substance: AMOXICILLIN\CLAVULANIC ACID
     Dates: start: 20140623, end: 20140630
  13. WARFARIN SODIUM. [Concomitant]
     Active Substance: WARFARIN SODIUM
     Dates: start: 20140508, end: 20140919
  14. CEFALEXIN [Concomitant]
     Active Substance: CEPHALEXIN
     Dates: start: 20140630, end: 20140707
  15. FLUCLOXACILLIN [Concomitant]
     Active Substance: FLUCLOXACILLIN
     Dates: start: 20140915
  16. FUROSEMIDE. [Concomitant]
     Active Substance: FUROSEMIDE
     Dates: start: 20140725, end: 20140918
  17. OMEPRAZOLE. [Concomitant]
     Active Substance: OMEPRAZOLE
     Dates: start: 20140623, end: 20140918

REACTIONS (1)
  - Myocardial ischaemia [Fatal]

NARRATIVE: CASE EVENT DATE: 20140919
